FAERS Safety Report 9168207 (Version 1)
Quarter: 2013Q1

REPORT INFORMATION
  Report Type: Spontaneous
  Country: US (occurrence: US)
  Receive Date: 20130318
  Receipt Date: 20130318
  Transmission Date: 20140127
  Serious: Yes (Other)
  Sender: FDA-Public Use
  Company Number: US-BAYER-2013-030190

PATIENT
  Age: 36 Year
  Sex: Female

DRUGS (1)
  1. MIRENA [Suspect]
     Indication: CONTRACEPTION
     Dosage: 20 MCG/24HR, CONT
     Route: 015
     Dates: start: 201212

REACTIONS (6)
  - Procedural pain [Recovered/Resolved]
  - Abdominal pain lower [None]
  - Post procedural haemorrhage [None]
  - Asthenia [None]
  - Device dislocation [Not Recovered/Not Resolved]
  - Device issue [None]
